FAERS Safety Report 20649705 (Version 3)
Quarter: 2023Q1

REPORT INFORMATION
  Report Type: Report from Study
  Country: IL (occurrence: IL)
  Receive Date: 20220329
  Receipt Date: 20230309
  Transmission Date: 20230417
  Serious: Yes (Death)
  Sender: FDA-Public Use
  Company Number: IL-ABBVIE-20K-082-3674746-00

PATIENT
  Age: 73 Year
  Sex: Female
  Weight: 65 kg

DRUGS (22)
  1. VENCLEXTA [Suspect]
     Active Substance: VENETOCLAX
     Indication: Acute myeloid leukaemia
     Route: 048
     Dates: start: 20201113, end: 20201113
  2. VENCLEXTA [Suspect]
     Active Substance: VENETOCLAX
     Indication: Acute myeloid leukaemia
     Route: 048
     Dates: start: 20201115, end: 20201207
  3. VENCLEXTA [Suspect]
     Active Substance: VENETOCLAX
     Indication: Acute myeloid leukaemia
     Dosage: 100 MILLIGRAM
     Route: 048
     Dates: start: 20201213, end: 20210103
  4. AZACITIDINE [Suspect]
     Active Substance: AZACITIDINE
     Indication: Acute myeloid leukaemia
     Dosage: CYCLE 1
     Route: 058
     Dates: start: 20201113, end: 20201114
  5. AZACITIDINE [Suspect]
     Active Substance: AZACITIDINE
     Indication: Acute myeloid leukaemia
     Dosage: CYCLE 1
     Route: 058
     Dates: start: 20201116, end: 20201119
  6. EXFORGE [Concomitant]
     Active Substance: AMLODIPINE BESYLATE\VALSARTAN
     Indication: Urinary tract infection
     Dates: start: 20201001
  7. ASPIRIN [Concomitant]
     Active Substance: ASPIRIN
     Indication: Prophylaxis
  8. ATENOLOL [Concomitant]
     Active Substance: ATENOLOL
     Indication: Essential hypertension
  9. NEXIUM [Concomitant]
     Active Substance: ESOMEPRAZOLE MAGNESIUM
     Indication: Gastrooesophageal reflux disease
     Dates: start: 20181022
  10. NEXIUM [Concomitant]
     Active Substance: ESOMEPRAZOLE MAGNESIUM
     Indication: Gastrooesophageal reflux disease
     Dates: end: 20181022
  11. PIPERACILLIN SODIUM\TAZOBACTAM SODIUM [Concomitant]
     Active Substance: PIPERACILLIN SODIUM\TAZOBACTAM SODIUM
     Indication: Prophylaxis
     Dates: start: 20201113, end: 20201116
  12. PIPERACILLIN SODIUM\TAZOBACTAM SODIUM [Concomitant]
     Active Substance: PIPERACILLIN SODIUM\TAZOBACTAM SODIUM
     Indication: Prophylaxis
     Dates: start: 20201116, end: 20201116
  13. VALSARTAN [Concomitant]
     Active Substance: VALSARTAN
     Indication: Essential hypertension
     Dates: start: 20201116
  14. VORICONAZOLE [Concomitant]
     Active Substance: VORICONAZOLE
     Indication: Prophylaxis
     Dates: start: 20201112
  15. CIPRODEX [Concomitant]
     Active Substance: CIPROFLOXACIN HYDROCHLORIDE\DEXAMETHASONE
     Indication: Prophylaxis
     Dates: start: 20201119, end: 20201125
  16. CIPRODEX [Concomitant]
     Active Substance: CIPROFLOXACIN HYDROCHLORIDE\DEXAMETHASONE
     Indication: Prophylaxis
     Dates: start: 20201130, end: 20201203
  17. LEVOFLOXACIN [Concomitant]
     Active Substance: LEVOFLOXACIN
     Indication: Prophylaxis
     Dates: start: 20201114, end: 20201117
  18. Fusid [Concomitant]
     Indication: Prophylaxis
     Dates: start: 20201130, end: 20201130
  19. AMLODIPINE MALEATE [Concomitant]
     Active Substance: AMLODIPINE MALEATE
     Indication: Hypertension
     Dates: start: 20201001
  20. COVID-19 VACCINE NOS [Concomitant]
     Active Substance: COVID-19 VACCINE NOS
     Indication: COVID-19 prophylaxis
     Route: 030
     Dates: start: 20210121, end: 20210121
  21. VFEND [Concomitant]
     Active Substance: VORICONAZOLE
     Indication: Antibiotic prophylaxis
     Dates: start: 20201109, end: 20210110
  22. VOLTAREN [Concomitant]
     Active Substance: DICLOFENAC SODIUM
     Indication: Herpes virus infection
     Dates: start: 20201213, end: 20201216

REACTIONS (11)
  - Disease progression [Fatal]
  - Bronchopulmonary aspergillosis [Recovered/Resolved]
  - Blood potassium decreased [Recovered/Resolved]
  - Pulmonary congestion [Recovered/Resolved]
  - Alanine aminotransferase increased [Recovered/Resolved]
  - Herpes virus infection [Recovered/Resolved]
  - Asthenia [Recovered/Resolved]
  - Haemoptysis [Recovered/Resolved]
  - Aspartate aminotransferase increased [Recovered/Resolved]
  - Diarrhoea [Recovered/Resolved with Sequelae]
  - Tumour lysis syndrome [Unknown]

NARRATIVE: CASE EVENT DATE: 20201113
